FAERS Safety Report 11131168 (Version 1)
Quarter: 2015Q2

REPORT INFORMATION
  Report Type: Spontaneous
  Country: US (occurrence: None)
  Receive Date: 20150520
  Receipt Date: 20150520
  Transmission Date: 20150821
  Serious: Yes (Hospitalization)
  Sender: FDA-Public Use
  Company Number: US-H14001-15-00749

PATIENT
  Age: 76 Year
  Sex: Female

DRUGS (1)
  1. LITHIUM (LITHIUM CARBONATE) (UNKNOWN) (LITHIUM CARBONATE) [Suspect]
     Active Substance: LITHIUM CARBONATE
     Indication: BIPOLAR DISORDER

REACTIONS (7)
  - Diarrhoea [None]
  - Mental status changes [None]
  - Nephrogenic diabetes insipidus [None]
  - Hypernatraemia [None]
  - Gait disturbance [None]
  - Toxicity to various agents [None]
  - Leukocytosis [None]
